FAERS Safety Report 7538083-2 (Version None)
Quarter: 2011Q2

REPORT INFORMATION
  Report Type: 
  Country: None (occurrence: None)
  Receive Date: 20110609
  Receipt Date: 20010219
  Transmission Date: 20111010
  Serious: Yes (Death)
  Sender: FDA-Public Use
  Company Number: PHFR2001GB00637

PATIENT
  Sex: Male

DRUGS (6)
  1. SULPIRIDE [Concomitant]
     Indication: SCHIZOPHRENIA
     Dosage: 300 MG, BID
     Route: 048
     Dates: end: 20010119
  2. LORAZEPAM [Concomitant]
     Indication: AGITATION
     Dosage: 1 MG, BID
     Route: 045
     Dates: end: 20010119
  3. CLOZARIL [Suspect]
     Indication: SCHIZOPHRENIA
     Dosage: 300 MG, BID
     Route: 048
     Dates: start: 19980317, end: 20010119
  4. ATENOLOL [Concomitant]
     Indication: MYOCARDIAL ISCHAEMIA
     Dosage: 60 MG, DAILY
     Route: 048
     Dates: end: 20010119
  5. NITROLINGUAL [Concomitant]
     Indication: MYOCARDIAL ISCHAEMIA
     Dosage: MANE
     Dates: end: 20010119
  6. ASPIRIN [Concomitant]
     Indication: MYOCARDIAL ISCHAEMIA
     Dosage: 1 DF, QD
     Route: 048
     Dates: end: 20010119

REACTIONS (4)
  - MYOCARDIAL ISCHAEMIA [None]
  - ARTERIOSCLEROSIS CORONARY ARTERY [None]
  - CIRCULATORY COLLAPSE [None]
  - CHEST PAIN [None]
